FAERS Safety Report 19013728 (Version 3)
Quarter: 2021Q2

REPORT INFORMATION
  Report Type: Report from Study
  Country: DE (occurrence: DE)
  Receive Date: 20210315
  Receipt Date: 20210514
  Transmission Date: 20210717
  Serious: Yes (Life-Threatening, Hospitalization, Other)
  Sender: FDA-Public Use
  Company Number: DE-BIOGEN-2021BI00988333

PATIENT
  Age: 51 Year
  Sex: Female

DRUGS (1)
  1. TYSABRI [Suspect]
     Active Substance: NATALIZUMAB
     Indication: RELAPSING-REMITTING MULTIPLE SCLEROSIS
     Route: 065
     Dates: start: 20130604

REACTIONS (2)
  - Appendicitis [Recovered/Resolved]
  - Haemorrhagic ovarian cyst [Recovered/Resolved]

NARRATIVE: CASE EVENT DATE: 20201012
